FAERS Safety Report 15556718 (Version 1)
Quarter: 2018Q4

REPORT INFORMATION
  Report Type: Spontaneous
  Country: FR (occurrence: FR)
  Receive Date: 20181026
  Receipt Date: 20181026
  Transmission Date: 20190205
  Serious: Yes (Other)
  Sender: FDA-Public Use
  Company Number: FR-TEVA-2018-FR-968833

PATIENT
  Age: 51 Year
  Sex: Female

DRUGS (2)
  1. PIROXICAM. [Suspect]
     Active Substance: PIROXICAM
     Indication: MESOTHERAPY
     Dosage: UNSPECIFIED
     Route: 023
     Dates: start: 20180115, end: 20180115
  2. PROCAINE (CHLORHYDRATE DE) [Suspect]
     Active Substance: PROCAINE HYDROCHLORIDE
     Indication: MESOTHERAPY
     Dosage: NON RENSEIGN?E
     Route: 023
     Dates: start: 20180115, end: 20180115

REACTIONS (2)
  - Injection site injury [Recovered/Resolved with Sequelae]
  - Injection site atrophy [Recovered/Resolved with Sequelae]

NARRATIVE: CASE EVENT DATE: 201804
